FAERS Safety Report 9548189 (Version 1)
Quarter: 2013Q3

REPORT INFORMATION
  Report Type: Spontaneous
  Country: US (occurrence: None)
  Receive Date: 20130709
  Receipt Date: 20130709
  Transmission Date: 20140515
  Serious: Yes (Other)
  Sender: FDA-Public Use
  Company Number: 1609770

PATIENT
  Sex: Male

DRUGS (2)
  1. VERAPAMIL [Suspect]
     Indication: ARTERIOGRAM CORONARY
     Dates: start: 20130219
  2. NITROGLYCERIN [Concomitant]

REACTIONS (2)
  - Hypotension [None]
  - Product quality issue [None]
